FAERS Safety Report 10474169 (Version 2)
Quarter: 2015Q3

REPORT INFORMATION
  Report Type: Spontaneous
  Country: DK (occurrence: DK)
  Receive Date: 20140924
  Receipt Date: 20150904
  Transmission Date: 20151125
  Serious: Yes (Life-Threatening, Hospitalization)
  Sender: FDA-Public Use
  Company Number: DK-PFIZER INC-2014260445

PATIENT
  Age: 60 Year
  Sex: Male

DRUGS (17)
  1. ATORVASTATIN PFIZER [Suspect]
     Active Substance: ATORVASTATIN
     Indication: HYPERCHOLESTEROLAEMIA
     Dosage: 80 MG, 1X/DAY
     Route: 048
     Dates: start: 20140115, end: 20140824
  2. CORODIL [Concomitant]
     Active Substance: DIPYRIDAMOLE
     Indication: HYPERTENSION
     Dosage: 10 MG, 2X/DAY
     Route: 048
     Dates: start: 20110411
  3. KALEORID [Concomitant]
     Active Substance: POTASSIUM CHLORIDE
     Indication: MINERAL SUPPLEMENTATION
     Dosage: 750 MG, 2X/DAY
     Route: 048
     Dates: start: 20130306, end: 20140910
  4. TEMGESIC ^ESSEX PHARMA^ [Concomitant]
     Active Substance: BUPRENORPHINE HYDROCHLORIDE
     Indication: PAIN
     Dosage: 0.4 MG, 4X/DAY
     Dates: start: 20110411, end: 20140828
  5. BIOCLAVID [Concomitant]
     Active Substance: AMOXICILLIN\CLAVULANIC ACID
     Indication: DEVICE RELATED INFECTION
     Dosage: [AMOXICILLIN TRIHYDRATE 500 MG/ CLAVULANIC POTASSIUM 125 MG], 1 DF 3X/DAY
     Route: 048
     Dates: start: 20140721, end: 20140821
  6. FUCIDIN [Interacting]
     Active Substance: FUSIDIC ACID
     Indication: DEVICE RELATED INFECTION
     Dosage: 500 MG, 3X/DAY; STRENGTH 250MG
     Route: 048
     Dates: start: 20140721, end: 20140821
  7. ESOMEPRAZOLE [Concomitant]
     Active Substance: ESOMEPRAZOLE
     Indication: GASTRIC PH DECREASED
     Dosage: 20 MG, 2X/DAY
     Route: 048
     Dates: start: 20140825
  8. OMNISTAD [Concomitant]
     Indication: DYSURIA
     Dosage: 0.4 MG, 1X/DAY
     Route: 048
     Dates: start: 20130124
  9. CARDICOR [Concomitant]
     Active Substance: BISOPROLOL
     Indication: CARDIAC DISORDER
     Dosage: 1.25 MG, 1X/DAY
     Route: 048
     Dates: start: 20140115
  10. FURIX [Concomitant]
     Active Substance: FUROSEMIDE
     Indication: DIURETIC THERAPY
     Dosage: 40 MG, 2X/DAY
     Dates: start: 20130305, end: 20140901
  11. IMOCLONE [Concomitant]
     Active Substance: ZOPICLONE
     Indication: INSOMNIA
     Dosage: 15 MG, 1X/DAY
     Route: 048
     Dates: start: 20110415
  12. NITROLINGUAL [Concomitant]
     Active Substance: NITROGLYCERIN
     Indication: ANGINA PECTORIS
     Dosage: 0.4 MG, AS NEEDED
     Route: 048
     Dates: start: 20110502
  13. ALPRAZOLAM. [Concomitant]
     Active Substance: ALPRAZOLAM
     Indication: RESTLESSNESS
     Dosage: 0.5 MG, DAILY AS NEEDED
     Route: 048
     Dates: start: 20130129, end: 20140829
  14. HJERDYL [Concomitant]
     Active Substance: ASPIRIN
     Indication: ANTICOAGULANT THERAPY
     Dosage: 75 MG, 1X/DAY
     Route: 048
     Dates: start: 20110411
  15. MOVICOL [Concomitant]
     Active Substance: POLYETHYLENE GLYCOL 3350\POTASSIUM CHLORIDE\SODIUM BICARBONATE\SODIUM CHLORIDE
     Indication: CONSTIPATION
     Dosage: 1 DF, 2X/DAY
     Route: 048
     Dates: start: 20140307, end: 20140819
  16. PINEX [Concomitant]
     Active Substance: ACETAMINOPHEN
     Indication: PAIN
     Dosage: 1 G, 4X/DAY
     Dates: start: 20110411
  17. CORDAN [Concomitant]
     Active Substance: AMIODARONE
     Indication: HEART RATE IRREGULAR
     Dosage: 100 MG, 1X/DAY
     Route: 048
     Dates: start: 20110502

REACTIONS (6)
  - Drug interaction [Recovered/Resolved]
  - Acute kidney injury [Recovered/Resolved]
  - Dialysis [Recovered/Resolved]
  - Rhabdomyolysis [Recovered/Resolved]
  - Asthenia [Recovered/Resolved]
  - Muscle fatigue [Recovered/Resolved]

NARRATIVE: CASE EVENT DATE: 201408
